FAERS Safety Report 9859488 (Version 1)
Quarter: 2014Q1

REPORT INFORMATION
  Report Type: Spontaneous
  Country: HK (occurrence: HK)
  Receive Date: 20140131
  Receipt Date: 20140131
  Transmission Date: 20141002
  Serious: Yes (Disabling)
  Sender: FDA-Public Use
  Company Number: HK-009507513-1401HKG012630

PATIENT
  Sex: Female

DRUGS (1)
  1. VICTRELIS [Suspect]
     Dosage: UNK
     Route: 048
     Dates: start: 20140113, end: 20140124

REACTIONS (4)
  - Bedridden [Unknown]
  - Faecal incontinence [Unknown]
  - Headache [Unknown]
  - Nausea [Unknown]
